FAERS Safety Report 7786553-4 (Version None)
Quarter: 2011Q3

REPORT INFORMATION
  Report Type: 
  Country: None (occurrence: None)
  Receive Date: 20110929
  Receipt Date: 20110920
  Transmission Date: 20111222
  Serious: Yes (Other)
  Sender: FDA-Public Use
  Company Number: GB-GLAXOSMITHKLINE-B0748565A

PATIENT
  Age: 67 Year
  Sex: Female

DRUGS (2)
  1. LAMOTRIGINE [Suspect]
  2. ABILIFY [Suspect]
     Dosage: 60MG PER DAY

REACTIONS (4)
  - DEMENTIA [None]
  - DELUSION [None]
  - DEPRESSION [None]
  - PSYCHOTIC DISORDER [None]
